FAERS Safety Report 13667371 (Version 4)
Quarter: 2017Q3

REPORT INFORMATION
  Report Type: Report from Study
  Country: US (occurrence: US)
  Receive Date: 20170620
  Receipt Date: 20170803
  Transmission Date: 20171127
  Serious: Yes (Life-Threatening, Hospitalization, Disabling)
  Sender: FDA-Public Use
  Company Number: PHEH2017US018483

PATIENT
  Age: 64 Year
  Sex: Female

DRUGS (1)
  1. COSENTYX [Suspect]
     Active Substance: SECUKINUMAB
     Indication: PSORIASIS
     Dosage: 300 MG, QW
     Route: 058
     Dates: start: 20170602

REACTIONS (7)
  - Meningitis [Unknown]
  - Immunosuppression [Unknown]
  - Constipation [Unknown]
  - Rash [Unknown]
  - Back pain [Unknown]
  - Herpes zoster [Unknown]
  - Nausea [Unknown]

NARRATIVE: CASE EVENT DATE: 20170602
